FAERS Safety Report 7394119-3 (Version None)
Quarter: 2011Q2

REPORT INFORMATION
  Report Type: 
  Country: None (occurrence: None)
  Receive Date: 20110405
  Receipt Date: 20110331
  Transmission Date: 20111010
  Serious: Yes (Hospitalization)
  Sender: FDA-Public Use
  Company Number: US-JNJFOC-20101107685

PATIENT
  Sex: Female
  Weight: 63.96 kg

DRUGS (10)
  1. ATENOLOL [Concomitant]
     Indication: BLOOD PRESSURE
     Route: 048
  2. LEVAQUIN [Suspect]
  3. FLUCONAZOLE [Concomitant]
     Indication: ABDOMINAL ABSCESS
     Route: 048
  4. LEVAQUIN [Suspect]
     Indication: ABDOMINAL ABSCESS
  5. LEVAQUIN [Suspect]
     Indication: POSTOPERATIVE ABSCESS
  6. METRONIDAZOLE [Concomitant]
     Indication: ABDOMINAL ABSCESS
     Route: 048
  7. ASPIRIN [Concomitant]
     Indication: ROUTINE HEALTH MAINTENANCE
     Route: 048
  8. LEVAQUIN [Suspect]
     Indication: OVARIAN ABSCESS
     Route: 042
  9. HYZAAR [Concomitant]
     Indication: BLOOD PRESSURE
     Dosage: 50/12 MG DAILY
     Route: 048
  10. COLACE [Concomitant]
     Indication: FAECES HARD
     Route: 048

REACTIONS (5)
  - MUSCULOSKELETAL PAIN [None]
  - PAIN IN EXTREMITY [None]
  - ABNORMAL LOSS OF WEIGHT [None]
  - HYPOAESTHESIA [None]
  - ARTHRALGIA [None]
